FAERS Safety Report 8272157-6 (Version None)
Quarter: 2012Q2

REPORT INFORMATION
  Report Type: 
  Country: None (occurrence: None)
  Receive Date: 20120410
  Receipt Date: 20120313
  Transmission Date: 20120825
  Serious: No
  Sender: FDA-Public Use
  Company Number: US-ASTRAZENECA-2012SE03606

PATIENT
  Age: 65 Year
  Sex: Male

DRUGS (3)
  1. MULTI-VITAMINS [Concomitant]
  2. LEVOTHYROXINE SODIUM [Concomitant]
  3. VANDETANIB [Suspect]
     Indication: THYROID CANCER
     Route: 048

REACTIONS (5)
  - OEDEMA PERIPHERAL [None]
  - ORAL PAIN [None]
  - DIARRHOEA [None]
  - EPISTAXIS [None]
  - ACNE [None]
